FAERS Safety Report 8543519-4 (Version None)
Quarter: 2012Q3

REPORT INFORMATION
  Report Type: 
  Country: None (occurrence: None)
  Receive Date: 20120727
  Receipt Date: 20120725
  Transmission Date: 20120928
  Serious: Yes (Death, Hospitalization, Other)
  Sender: FDA-Public Use
  Company Number: PHHY2012GR063195

PATIENT
  Sex: Female

DRUGS (2)
  1. MEDROL [Concomitant]
     Indication: IMMUNOSUPPRESSION
     Dosage: 8 MG
     Dates: start: 20120517, end: 20120605
  2. MYCOPHENOLIC ACID [Suspect]
     Indication: IMMUNOSUPPRESSION
     Dosage: 1080 MG
     Route: 048
     Dates: start: 20120226, end: 20120605

REACTIONS (4)
  - LUNG INFECTION [None]
  - RESPIRATORY FAILURE [None]
  - CARDIAC FAILURE [None]
  - CYTOMEGALOVIRUS INFECTION [None]
